FAERS Safety Report 6624637-4 (Version None)
Quarter: 2010Q1

REPORT INFORMATION
  Report Type: 
  Country: None (occurrence: None)
  Receive Date: 20100310
  Receipt Date: 20090929
  Transmission Date: 20100710
  Serious: No
  Sender: FDA-Public Use
  Company Number: US-BIOGENIDEC-2009BI032051

PATIENT
  Sex: Female

DRUGS (4)
  1. AVONEX [Suspect]
     Indication: MULTIPLE SCLEROSIS
     Route: 030
     Dates: start: 20060818
  2. AVONEX [Suspect]
     Route: 030
     Dates: end: 20080314
  3. EFFEXOR XR [Concomitant]
     Indication: DEPRESSION
  4. TOPAMAX [Concomitant]

REACTIONS (4)
  - CRYING [None]
  - DEPRESSION [None]
  - NEPHROLITHIASIS [None]
  - SUICIDAL IDEATION [None]
